FAERS Safety Report 7336712-X (Version None)
Quarter: 2011Q1

REPORT INFORMATION
  Report Type: 
  Country: None (occurrence: None)
  Receive Date: 20110308
  Receipt Date: 20110224
  Transmission Date: 20110831
  Serious: No
  Sender: FDA-Public Use
  Company Number: US-BIOGENIDEC-2010BI017737

PATIENT
  Sex: Female

DRUGS (1)
  1. TYSABRI [Suspect]
     Indication: MULTIPLE SCLEROSIS
     Route: 042
     Dates: start: 20100401

REACTIONS (18)
  - AGEUSIA [None]
  - PAROSMIA [None]
  - DECREASED APPETITE [None]
  - INCREASED TENDENCY TO BRUISE [None]
  - MALNUTRITION [None]
  - HEADACHE [None]
  - WEIGHT DECREASED [None]
  - FOOD AVERSION [None]
  - EYELID PTOSIS [None]
  - DIARRHOEA [None]
  - CONSTIPATION [None]
  - ALOPECIA [None]
  - OPTIC NEURITIS [None]
  - APHASIA [None]
  - LETHARGY [None]
  - DARK CIRCLES UNDER EYES [None]
  - MEMORY IMPAIRMENT [None]
  - FATIGUE [None]
